FAERS Safety Report 22087925 (Version 3)
Quarter: 2023Q2

REPORT INFORMATION
  Report Type: Spontaneous
  Country: US (occurrence: US)
  Receive Date: 20230313
  Receipt Date: 20230613
  Transmission Date: 20230721
  Serious: No
  Sender: FDA-Public Use
  Company Number: US-ABBVIE-4338051

PATIENT
  Sex: Female
  Weight: 63.502 kg

DRUGS (5)
  1. CREON [Suspect]
     Active Substance: PANCRELIPASE AMYLASE\PANCRELIPASE LIPASE\PANCRELIPASE PROTEASE
     Indication: Product used for unknown indication
     Dosage: 36000 LU?FREQUENCY TEXT: TAKING ONE AFTER MEAL
     Route: 048
     Dates: start: 20230415
  2. CREON [Suspect]
     Active Substance: PANCRELIPASE AMYLASE\PANCRELIPASE LIPASE\PANCRELIPASE PROTEASE
     Indication: Product used for unknown indication
     Dosage: 36000 LU?FREQUENCY TEXT: TAKING ONE AFTER MEAL
     Route: 048
  3. eciprevalite [Concomitant]
     Indication: Product used for unknown indication
     Dosage: FORM STRENGTH: 515 GRAM?FREQUENCY TEXT: 2 TWICE DAILY
     Route: 048
     Dates: start: 2021
  4. eciprevalite [Concomitant]
     Indication: Product used for unknown indication
     Dosage: FORM STRENGTH: 515 GRAM?FREQUENCY TEXT: 2 TWICE DAILY
     Route: 048
     Dates: start: 2021
  5. METAMUCIL [Concomitant]
     Active Substance: PLANTAGO SEED
     Indication: Product used for unknown indication
     Dosage: FREQUENCY TEXT: TAKING ONE AFTER MEAL
     Route: 065

REACTIONS (2)
  - Diarrhoea [Not Recovered/Not Resolved]
  - Flatulence [Not Recovered/Not Resolved]

NARRATIVE: CASE EVENT DATE: 20230101
